FAERS Safety Report 11135501 (Version 1)
Quarter: 2015Q2

REPORT INFORMATION
  Report Type: Spontaneous
  Country: None (occurrence: None)
  Receive Date: 20150522
  Receipt Date: 20150522
  Transmission Date: 20150821
  Serious: Yes (Life-Threatening, Disabling)
  Sender: FDA-Public Use
  Company Number: None

PATIENT
  Age: 25 Year
  Sex: Male
  Weight: 52.16 kg

DRUGS (4)
  1. WHEELCHAIR ??? [Concomitant]
  2. MIRALAX [Concomitant]
     Active Substance: POLYETHYLENE GLYCOL 3350
  3. BACLOFEN. [Concomitant]
     Active Substance: BACLOFEN
  4. HALDOL [Suspect]
     Active Substance: HALOPERIDOL
     Indication: FEAR
     Dosage: INJECTION, ONCE ONLY, INTO THE MUSCLE

REACTIONS (17)
  - Dyspnoea [None]
  - Swollen tongue [None]
  - Speech disorder [None]
  - Musculoskeletal disorder [None]
  - Posture abnormal [None]
  - Asthenia [None]
  - Feeding disorder [None]
  - Urinary retention [None]
  - Dysphagia [None]
  - Drooling [None]
  - Trismus [None]
  - Fluid intake reduced [None]
  - Musculoskeletal stiffness [None]
  - Confusional state [None]
  - Catatonia [None]
  - Swelling face [None]
  - Tremor [None]

NARRATIVE: CASE EVENT DATE: 20150515
